FAERS Safety Report 8320203-3 (Version None)
Quarter: 2012Q2

REPORT INFORMATION
  Report Type: 
  Country: None (occurrence: None)
  Receive Date: 20120430
  Receipt Date: 20120420
  Transmission Date: 20120825
  Serious: Yes (Hospitalization)
  Sender: FDA-Public Use
  Company Number: US-BIOGENIDEC-2012BI013826

PATIENT
  Age: 47 Year
  Sex: Female

DRUGS (1)
  1. AVONEX [Suspect]
     Indication: MULTIPLE SCLEROSIS
     Route: 030
     Dates: start: 20111202

REACTIONS (4)
  - MOBILITY DECREASED [None]
  - ROAD TRAFFIC ACCIDENT [None]
  - LIGAMENT SPRAIN [None]
  - SPINAL CORD INJURY CERVICAL [None]
